FAERS Safety Report 8770893 (Version 1)
Quarter: 2012Q4

REPORT INFORMATION
  Report Type: 
  Country: US (occurrence: US)
  Receive Date: 20120906
  Receipt Date: 20120906
  Transmission Date: 20130627
  Serious: Yes (Hospitalization)
  Sender: FDA-Public Use
  Company Number: PHHY2012US075492

PATIENT
  Age: 27 Year
  Sex: Female

DRUGS (6)
  1. VERAPAMIL [Suspect]
     Indication: VASOSPASM
     Dosage: 20 mg, 2.5 mg/ml
     Route: 013
  2. VERAPAMIL [Suspect]
     Dosage: 10 mg, UNK
     Route: 013
  3. VERAPAMIL [Suspect]
     Dosage: 20 mg, UNK
     Route: 013
  4. VERAPAMIL [Suspect]
     Dosage: 20 mg, UNK
  5. ASPIRIN [Concomitant]
     Dosage: 325 mg, UNK
  6. CLOPIDOGREL [Concomitant]
     Dosage: 75 mg, daily

REACTIONS (6)
  - Grand mal convulsion [Recovering/Resolving]
  - Headache [Recovering/Resolving]
  - Agitation [Recovering/Resolving]
  - Lethargy [Recovering/Resolving]
  - Clonic convulsion [Recovering/Resolving]
  - Hemiparesis [Recovering/Resolving]
